FAERS Safety Report 10063816 (Version 3)
Quarter: 2014Q2

REPORT INFORMATION
  Report Type: Spontaneous
  Country: ES (occurrence: ES)
  Receive Date: 20140408
  Receipt Date: 20140429
  Transmission Date: 20141212
  Serious: No
  Sender: FDA-Public Use
  Company Number: ES-009507513-1403ESP006205

PATIENT
  Age: 2 Year
  Sex: Male
  Weight: 11 kg

DRUGS (3)
  1. DIPRODERM [Suspect]
     Indication: URTICARIA
     Dosage: 1.8 ML, EVERY 12 HOURS
     Route: 048
     Dates: start: 20140305, end: 20140305
  2. POLARAMINE [Suspect]
     Indication: URTICARIA
     Dosage: 1.8 ML EVERY 8 HOURS IN CASE OF ITCHY
     Route: 048
  3. ESTILSONA [Concomitant]
     Indication: URTICARIA
     Dosage: 0.8 ML, Q12H
     Route: 048
     Dates: start: 20140305

REACTIONS (5)
  - Toxicity to various agents [Unknown]
  - Somnolence [Unknown]
  - Drug dispensing error [Unknown]
  - Wrong drug administered [Unknown]
  - Incorrect route of drug administration [Unknown]
